FAERS Safety Report 7266425-4 (Version None)
Quarter: 2011Q1

REPORT INFORMATION
  Report Type: 
  Country: None (occurrence: None)
  Receive Date: 20110131
  Receipt Date: 20110119
  Transmission Date: 20110831
  Serious: Yes (Hospitalization)
  Sender: FDA-Public Use
  Company Number: JP-GENENTECH-310148

PATIENT
  Sex: Male
  Weight: 35 kg

DRUGS (11)
  1. SINGULAIR [Concomitant]
  2. THEO-DUR [Concomitant]
  3. OMALIZUMAB [Suspect]
     Indication: ASTHMA
     Dosage: UNK
     Route: 058
     Dates: start: 20101108
  4. FLUTIDE DISKUS [Concomitant]
     Indication: PRODUCT USED FOR UNKNOWN INDICATION
  5. MUCOSOLVAN [Concomitant]
  6. SEREVENT [Concomitant]
  7. HOKUNALIN [Concomitant]
  8. SPIROPENT [Concomitant]
  9. INTAL [Concomitant]
  10. ALESION [Concomitant]
  11. MEPTIN [Concomitant]

REACTIONS (1)
  - URTICARIA [None]
